FAERS Safety Report 12671522 (Version 1)
Quarter: 2016Q3

REPORT INFORMATION
  Report Type: Spontaneous
  Country: IT (occurrence: IT)
  Receive Date: 20160822
  Receipt Date: 20160822
  Transmission Date: 20161109
  Serious: Yes (Hospitalization)
  Sender: FDA-Public Use
  Company Number: IT-BRISTOL-MYERS SQUIBB COMPANY-BMS-2016-065397

PATIENT
  Age: 30 Year
  Sex: Female

DRUGS (1)
  1. COUMADIN [Suspect]
     Active Substance: WARFARIN SODIUM
     Indication: CEREBRAL ISCHAEMIA
     Route: 048

REACTIONS (4)
  - Menometrorrhagia [Unknown]
  - Pallor [Unknown]
  - Metrorrhagia [Unknown]
  - Asthenia [Unknown]

NARRATIVE: CASE EVENT DATE: 20101228
